FAERS Safety Report 8269479-1 (Version None)
Quarter: 2012Q2

REPORT INFORMATION
  Report Type: 
  Country: None (occurrence: None)
  Receive Date: 20120409
  Receipt Date: 20120403
  Transmission Date: 20120825
  Serious: Yes (Other)
  Sender: FDA-Public Use
  Company Number: US-AMGEN-USASP2011021274

PATIENT
  Sex: Male

DRUGS (1)
  1. ENBREL [Suspect]
     Indication: PSORIASIS
     Dosage: UNK
     Dates: start: 20101101, end: 20110212

REACTIONS (6)
  - PULMONARY FIBROSIS [None]
  - MUSCULAR WEAKNESS [None]
  - STAPHYLOCOCCAL INFECTION [None]
  - PSORIATIC ARTHROPATHY [None]
  - LOCALISED INFECTION [None]
  - ARTHRALGIA [None]
